FAERS Safety Report 9778637 (Version 2)
Quarter: 2014Q2

REPORT INFORMATION
  Report Type: Spontaneous
  Country: US (occurrence: None)
  Receive Date: 20131219
  Receipt Date: 20140521
  Transmission Date: 20141212
  Serious: Yes (Other)
  Sender: FDA-Public Use
  Company Number: 2013-US-004396

PATIENT
  Age: 54 Year
  Sex: Female

DRUGS (2)
  1. XYREM [Suspect]
     Indication: NARCOLEPSY
     Dosage: 2.25 G, BID, ORAL
     Route: 048
     Dates: start: 201302
  2. XYREM [Suspect]
     Indication: CATAPLEXY
     Dosage: 2.25 G, BID, ORAL
     Route: 048
     Dates: start: 201302

REACTIONS (2)
  - Lung neoplasm malignant [None]
  - Emphysema [None]
